FAERS Safety Report 16144765 (Version 1)
Quarter: 2019Q2

REPORT INFORMATION
  Report Type: Other
  Country: DE (occurrence: DE)
  Receive Date: 20190402
  Receipt Date: 20190402
  Transmission Date: 20190711
  Serious: Yes (Other)
  Sender: FDA-Public Use
  Company Number: DE-LUPIN PHARMACEUTICALS INC.-2018-05820

PATIENT
  Age: 20 Year
  Sex: Male

DRUGS (4)
  1. PIPAMPERON [Concomitant]
     Active Substance: PIPAMPERONE HYDROCHLORIDE
     Dosage: 20 MG, UNK
     Route: 065
     Dates: start: 20160118
  2. PIPAMPERON [Concomitant]
     Active Substance: PIPAMPERONE HYDROCHLORIDE
     Indication: PRODUCT USED FOR UNKNOWN INDICATION
     Dosage: 20 MG, QD
     Route: 048
     Dates: start: 20160116
  3. SERTRALINE [Suspect]
     Active Substance: SERTRALINE HYDROCHLORIDE
     Indication: PRODUCT USED FOR UNKNOWN INDICATION
     Dosage: 50 MG, QD
     Route: 048
     Dates: start: 20160112, end: 20160119
  4. PIPAMPERON [Concomitant]
     Active Substance: PIPAMPERONE HYDROCHLORIDE
     Dosage: 40 MG, QD
     Route: 048
     Dates: start: 20160106, end: 20160115

REACTIONS (1)
  - Diarrhoea [Recovered/Resolved]

NARRATIVE: CASE EVENT DATE: 20160115
